FAERS Safety Report 5815522-6 (Version None)
Quarter: 2008Q3

REPORT INFORMATION
  Report Type: 
  Country: None (occurrence: None)
  Receive Date: 20080718
  Receipt Date: 20080707
  Transmission Date: 20090109
  Serious: Yes (Hospitalization)
  Sender: FDA-Public Use
  Company Number: US-PFIZER INC-2008057562

PATIENT
  Sex: Female
  Weight: 86.2 kg

DRUGS (5)
  1. LYRICA [Suspect]
     Indication: NEUROPATHY PERIPHERAL
     Dates: start: 20080501, end: 20080707
  2. LASIX [Concomitant]
  3. ANTIHYPERTENSIVES [Concomitant]
  4. ANTI-DIABETICS [Concomitant]
  5. POTASSIUM CHLORIDE [Concomitant]

REACTIONS (8)
  - ABDOMINAL PAIN UPPER [None]
  - CHOKING [None]
  - DIARRHOEA [None]
  - DIZZINESS [None]
  - FEELING ABNORMAL [None]
  - HEAD DISCOMFORT [None]
  - MALAISE [None]
  - RASH [None]
